FAERS Safety Report 4693587-5 (Version None)
Quarter: 2005Q2

REPORT INFORMATION
  Report Type: 
  Country: None (occurrence: None)
  Receive Date: 20050615
  Receipt Date: 20050610
  Transmission Date: 20051028
  Serious: Yes (Hospitalization, Other)
  Sender: FDA-Public Use
  Company Number: THQ2005A00345

PATIENT
  Age: 77 Year
  Sex: Male

DRUGS (14)
  1. LANSOPRAZOLE [Suspect]
     Indication: PROPHYLAXIS AGAINST GASTROINTESTINAL ULCER
     Dosage: 30 MG (30 MG, 1 IN 1 D)
     Route: 048
     Dates: start: 20050127, end: 20050201
  2. PANTOPRAZOLE [Suspect]
     Indication: PROPHYLAXIS AGAINST GASTROINTESTINAL ULCER
     Dosage: 40 MG (40 MG, 1 IN 1 D)
     Route: 042
     Dates: start: 20050102, end: 20050127
  3. ZYVOX [Suspect]
     Dosage: 1200 MG (600 MG, 2 IN 1 D)
     Route: 042
     Dates: start: 20050104, end: 20050120
  4. FLUCLOXACILLIN [Concomitant]
  5. TAZOCIN (PIP/TAZO) [Concomitant]
  6. TEICOPLANIN [Concomitant]
  7. AMIODARONE HCL [Concomitant]
  8. HEPARIN [Concomitant]
  9. PROPOFOL [Concomitant]
  10. ALFENTANIL [Concomitant]
  11. FUROSEMIDE [Concomitant]
  12. INSULIN [Concomitant]
  13. NORADRENALINE (NOREPINEPHRINE) [Concomitant]
  14. METOCLOPRAMIDE [Concomitant]

REACTIONS (5)
  - ALANINE AMINOTRANSFERASE INCREASED [None]
  - BLOOD ALKALINE PHOSPHATASE INCREASED [None]
  - BLOOD BILIRUBIN INCREASED [None]
  - INTERNATIONAL NORMALISED RATIO INCREASED [None]
  - RENAL FAILURE ACUTE [None]
